FAERS Safety Report 8806706 (Version 6)
Quarter: 2014Q1

REPORT INFORMATION
  Report Type: Report from Study
  Country: TR (occurrence: TR)
  Receive Date: 20120925
  Receipt Date: 20140117
  Transmission Date: 20141002
  Serious: No
  Sender: FDA-Public Use
  Company Number: PHHY2012TR039796

PATIENT
  Age: 50 Year
  Sex: Female

DRUGS (2)
  1. TASIGNA [Suspect]
     Indication: CHRONIC MYELOID LEUKAEMIA
     Dosage: 800 MG, DAILY (2 CAPSULES IN THE MORNING AND 2 CAPSULES IN THE EVENING)
     Route: 048
     Dates: start: 20100713
  2. TASIGNA [Suspect]
     Dosage: 400 MG, DAILY (2 CAPSULES IN THE MORNING)
     Route: 048
     Dates: start: 2012

REACTIONS (7)
  - Abdominal pain [Unknown]
  - Diarrhoea [Recovered/Resolved]
  - Weight decreased [Recovered/Resolved]
  - Overdose [Recovered/Resolved]
  - Malaise [Recovered/Resolved]
  - Pain in extremity [Recovered/Resolved]
  - Decreased appetite [Recovered/Resolved]
